FAERS Safety Report 7344904-9 (Version None)
Quarter: 2011Q1

REPORT INFORMATION
  Report Type: 
  Country: None (occurrence: None)
  Receive Date: 20110310
  Receipt Date: 20110228
  Transmission Date: 20110831
  Serious: Yes (Death)
  Sender: FDA-Public Use
  Company Number: US-CELGENEUS-163-21880-11030252

PATIENT
  Sex: Female

DRUGS (6)
  1. REVLIMID [Suspect]
     Indication: MULTIPLE MYELOMA
     Dosage: 25 MILLIGRAM
     Route: 048
     Dates: start: 20110122
  2. AMBIEN [Concomitant]
     Route: 065
  3. OXYCODONE HCL [Concomitant]
     Route: 065
  4. PERCOCET [Concomitant]
     Route: 065
  5. PREVACID [Concomitant]
     Route: 065
  6. VALTREX [Concomitant]
     Route: 065

REACTIONS (1)
  - DEATH [None]
